FAERS Safety Report 9109925 (Version 1)
Quarter: 2013Q1

REPORT INFORMATION
  Report Type: Spontaneous
  Country: US (occurrence: US)
  Receive Date: 20130222
  Receipt Date: 20130222
  Transmission Date: 20140127
  Serious: No
  Sender: FDA-Public Use
  Company Number: US-ASTRAZENECA-2013SE08864

PATIENT
  Age: 65 Year
  Sex: Male
  Weight: 94.8 kg

DRUGS (5)
  1. LISINOPRIL [Suspect]
     Route: 048
  2. METOPROLOL SUCCINATE [Suspect]
     Route: 048
  3. BRILINTA [Suspect]
     Indication: STENT PLACEMENT
     Route: 048
     Dates: start: 201212
  4. PREVASTATIN [Concomitant]
     Indication: BLOOD CHOLESTEROL ABNORMAL
     Route: 048
  5. BABY ASPIRIN [Concomitant]

REACTIONS (1)
  - Costochondritis [Not Recovered/Not Resolved]
